FAERS Safety Report 10197629 (Version 1)
Quarter: 2014Q2

REPORT INFORMATION
  Report Type: Spontaneous
  Country: None (occurrence: US)
  Receive Date: 20140527
  Receipt Date: 20140527
  Transmission Date: 20141212
  Serious: No
  Sender: FDA-Public Use
  Company Number: US-NOVEN-14US009302

PATIENT
  Age: 37 Year
  Sex: Female

DRUGS (1)
  1. MINIVELLE [Suspect]
     Indication: MOOD SWINGS
     Dosage: 0.1 MG, UNK
     Route: 062
     Dates: start: 201403

REACTIONS (6)
  - Malaise [Not Recovered/Not Resolved]
  - Mood swings [Not Recovered/Not Resolved]
  - Abdominal pain upper [Not Recovered/Not Resolved]
  - Diarrhoea [Not Recovered/Not Resolved]
  - Drug ineffective [Not Recovered/Not Resolved]
  - Off label use [Not Recovered/Not Resolved]
